FAERS Safety Report 10612021 (Version 2)
Quarter: 2014Q4

REPORT INFORMATION
  Report Type: Spontaneous
  Country: JP (occurrence: JP)
  Receive Date: 20141126
  Receipt Date: 20141126
  Transmission Date: 20150529
  Serious: Yes (Hospitalization, Other)
  Sender: FDA-Public Use
  Company Number: JP-009507513-1411JPN000048

PATIENT
  Age: 76 Year
  Sex: Male

DRUGS (1)
  1. TEMODAL [Suspect]
     Active Substance: TEMOZOLOMIDE
     Indication: BRAIN NEOPLASM
     Dosage: DAILY DOSE UNKNOWN
     Route: 041
     Dates: start: 20141001, end: 20141026

REACTIONS (6)
  - Sepsis [Recovering/Resolving]
  - Vomiting [Not Recovered/Not Resolved]
  - Opportunistic infection [Recovering/Resolving]
  - White blood cell count decreased [Unknown]
  - Hepatic function abnormal [Unknown]
  - Nausea [Not Recovered/Not Resolved]

NARRATIVE: CASE EVENT DATE: 20141027
